FAERS Safety Report 14862497 (Version 1)
Quarter: 2018Q2

REPORT INFORMATION
  Report Type: Spontaneous
  Country: US (occurrence: US)
  Receive Date: 20180508
  Receipt Date: 20180508
  Transmission Date: 20180711
  Serious: No
  Sender: FDA-Public Use
  Company Number: US-ALKERMES INC.-ALK-2017-001582

PATIENT
  Age: 26 Year
  Sex: Female
  Weight: 49.89 kg

DRUGS (5)
  1. OTHER THERAPEUTIC PRODUCTS [Concomitant]
     Active Substance: UNSPECIFIED INGREDIENT
     Indication: DEPRESSION
  2. VIVITROL [Suspect]
     Active Substance: NALTREXONE
     Dosage: 380 MG, QMO
     Route: 030
     Dates: end: 2017
  3. XANAX [Concomitant]
     Active Substance: ALPRAZOLAM
     Indication: PRODUCT USED FOR UNKNOWN INDICATION
     Dosage: UNK
  4. VIVITROL [Suspect]
     Active Substance: NALTREXONE
     Indication: DRUG DEPENDENCE
     Dosage: 380 MG, QMO
     Route: 030
     Dates: start: 2016, end: 2016
  5. VIVITROL [Suspect]
     Active Substance: NALTREXONE
     Dosage: 380 MG, QMO
     Route: 030
     Dates: start: 2017, end: 201710

REACTIONS (8)
  - Drug dose omission [Unknown]
  - Injection site reaction [Unknown]
  - Injection site mass [Unknown]
  - Overdose [Unknown]
  - Drug dependence [Unknown]
  - Injection site haematoma [Unknown]
  - Syncope [Unknown]
  - Euphoric mood [Unknown]

NARRATIVE: CASE EVENT DATE: 201606
